FAERS Safety Report 10890829 (Version 1)
Quarter: 2015Q1

REPORT INFORMATION
  Report Type: Spontaneous
  Country: US (occurrence: US)
  Receive Date: 20150305
  Receipt Date: 20150305
  Transmission Date: 20150721
  Serious: Yes (Other)
  Sender: FDA-Public Use
  Company Number: US-GLENMARK GENERICS INC.-2015GMK014469

PATIENT
  Sex: Female

DRUGS (1)
  1. FLUCONAZOLE TABLETS [Suspect]
     Active Substance: FLUCONAZOLE
     Indication: FUNGAL INFECTION
     Dosage: UNK
     Route: 048

REACTIONS (1)
  - Rectal haemorrhage [Unknown]
